FAERS Safety Report 4843792-X (Version None)
Quarter: 2005Q4

REPORT INFORMATION
  Report Type: 
  Country: None (occurrence: None)
  Receive Date: 20051202
  Receipt Date: 20051123
  Transmission Date: 20060501
  Serious: Yes (Death)
  Sender: FDA-Public Use
  Company Number: US-JNJFOC-20050800350

PATIENT
  Age: 55 Year
  Sex: Male

DRUGS (1)
  1. REMICADE [Suspect]
     Indication: CROHN'S DISEASE

REACTIONS (7)
  - ABSCESS [None]
  - DISSEMINATED INTRAVASCULAR COAGULATION [None]
  - FISTULA [None]
  - MYELOID LEUKAEMIA [None]
  - PANCYTOPENIA [None]
  - RENAL TUBULAR NECROSIS [None]
  - STAPHYLOCOCCAL SEPSIS [None]
